FAERS Safety Report 8466204-6 (Version None)
Quarter: 2012Q2

REPORT INFORMATION
  Report Type: 
  Country: None (occurrence: None)
  Receive Date: 20120626
  Receipt Date: 20120615
  Transmission Date: 20120825
  Serious: Yes (Hospitalization, Other)
  Sender: FDA-Public Use
  Company Number: US-ELI_LILLY_AND_COMPANY-US201009003550

PATIENT
  Sex: Female

DRUGS (16)
  1. FORTEO [Suspect]
     Indication: OSTEOPOROSIS
     Dosage: 20 UG, DAILY (1/D)
     Dates: start: 20100908
  2. FORTEO [Suspect]
     Dosage: 20 UG, QD
  3. FORTEO [Suspect]
     Dosage: 20 UG, QD
  4. ATENOLOL [Concomitant]
  5. MULTI-VITAMIN [Concomitant]
  6. EVISTA [Suspect]
     Indication: OSTEOPOROSIS
     Dosage: 60 MG, DAILY (1/D)
     Dates: start: 20080101, end: 20100516
  7. COZAAR [Concomitant]
  8. ASPIRIN [Concomitant]
  9. CALCIUM WITH VITAMIN D /00944201/ [Concomitant]
  10. TAGAMET [Concomitant]
  11. FORTEO [Suspect]
     Dosage: 20 UG, QD
  12. HUMALOG [Suspect]
     Indication: DIABETES MELLITUS
     Dosage: UNK UNK, QD
     Dates: start: 19980101
  13. AMLODIPINE [Concomitant]
  14. FORTEO [Suspect]
     Dosage: 20 UG, DAILY (1/D)
     Dates: start: 20101201
  15. SIMVASTATIN [Concomitant]
  16. GLUCOSE [Concomitant]

REACTIONS (52)
  - FIBULA FRACTURE [None]
  - FALL [None]
  - GENERAL SYMPTOM [None]
  - ARTHRITIS [None]
  - VERTIGO [None]
  - NASAL CONGESTION [None]
  - VOCAL CORD DISORDER [None]
  - PROTEIN URINE PRESENT [None]
  - TIBIA FRACTURE [None]
  - ANKLE FRACTURE [None]
  - BONE DENSITY DECREASED [None]
  - DIZZINESS [None]
  - CYSTITIS [None]
  - URINARY TRACT INFECTION [None]
  - MICTURITION URGENCY [None]
  - RESTLESS LEGS SYNDROME [None]
  - INJECTION SITE HAEMATOMA [None]
  - IGA NEPHROPATHY [None]
  - TOOTH DISORDER [None]
  - PAIN [None]
  - INJECTION SITE REACTION [None]
  - ECCHYMOSIS [None]
  - VIRAL INFECTION [None]
  - DENTAL CARIES [None]
  - INJECTION SITE SWELLING [None]
  - RESTLESSNESS [None]
  - FEELING ABNORMAL [None]
  - HAEMORRHAGE [None]
  - OSTEOPOROSIS [None]
  - SINUSITIS [None]
  - TOOTH EXTRACTION [None]
  - INJECTION SITE ERYTHEMA [None]
  - HEADACHE [None]
  - BLOOD URINE PRESENT [None]
  - EAR INFECTION [None]
  - CALCINOSIS [None]
  - UPPER RESPIRATORY TRACT INFECTION [None]
  - DRUG INEFFECTIVE [None]
  - TOOTH INJURY [None]
  - WEIGHT DECREASED [None]
  - DEAFNESS UNILATERAL [None]
  - BRONCHITIS [None]
  - APHONIA [None]
  - ERYTHEMA [None]
  - MALAISE [None]
  - SENSORY DISTURBANCE [None]
  - LARYNGITIS [None]
  - VOCAL CORD PARALYSIS [None]
  - HYPOTENSION [None]
  - SNEEZING [None]
  - NEUROLOGICAL INFECTION [None]
  - VOMITING [None]
